FAERS Safety Report 4330049-9 (Version None)
Quarter: 2004Q1

REPORT INFORMATION
  Report Type: 
  Country: None (occurrence: None)
  Receive Date: 20040329
  Receipt Date: 20040309
  Transmission Date: 20041129
  Serious: Yes (Hospitalization)
  Sender: FDA-Public Use
  Company Number: F01200400477

PATIENT
  Age: 55 Year
  Sex: Female

DRUGS (7)
  1. (OXALIPLATIN) - SOLUTION - 85 MG/M2 [Suspect]
     Indication: COLON CANCER METASTATIC
     Dosage: 85 MG/M2 Q2W, INTRAVENOUS NOS
     Route: 042
  2. (CAPECITABINE) - TABLET - 3500 MG [Suspect]
     Dosage: 1000 MG/M2 TWICE A DAY FROM MONDAY TO FRIDAY, ORAL
     Route: 048
     Dates: start: 20040213
  3. (BEVACIZUMB) - SOLUTION - 10 MG/KG [Suspect]
     Dosage: 10 MG/KG Q2W, INTRAVENOUS NOS
     Route: 042
     Dates: start: 20040213, end: 20040213
  4. MULTIVITAMIN (MULTIVITAMINS) [Concomitant]
  5. PROCRIT (ERYTHROPOIETIN) [Concomitant]
  6. ACIPHEX [Concomitant]
  7. IRON [Concomitant]

REACTIONS (5)
  - ATELECTASIS [None]
  - CARDIAC FAILURE CONGESTIVE [None]
  - MITRAL VALVE INCOMPETENCE [None]
  - PULMONARY VALVE INCOMPETENCE [None]
  - VENTRICULAR DYSFUNCTION [None]
